FAERS Safety Report 8469551-7 (Version None)
Quarter: 2012Q2

REPORT INFORMATION
  Report Type: 
  Country: None (occurrence: None)
  Receive Date: 20120626
  Receipt Date: 20120619
  Transmission Date: 20120825
  Serious: Yes (Other)
  Sender: FDA-Public Use
  Company Number: JP-JNJFOC-20120521355

PATIENT
  Sex: Female
  Weight: 90 kg

DRUGS (12)
  1. INVEGA [Suspect]
     Route: 048
     Dates: start: 20120105, end: 20120307
  2. ZESTROMIN [Concomitant]
     Indication: SCHIZOPHRENIA, PARANOID TYPE
     Route: 048
     Dates: start: 20111231
  3. EPEL [Suspect]
     Indication: CERVICOBRACHIAL SYNDROME
     Route: 048
     Dates: start: 20120113, end: 20120312
  4. QUAZEPAM [Concomitant]
     Indication: SCHIZOPHRENIA, PARANOID TYPE
     Route: 048
     Dates: start: 20120118, end: 20120124
  5. INVEGA [Suspect]
     Indication: SCHIZOPHRENIA, PARANOID TYPE
     Route: 048
     Dates: start: 20120308, end: 20120312
  6. NITRAZEPAM [Suspect]
     Indication: SCHIZOPHRENIA, PARANOID TYPE
     Route: 048
     Dates: start: 20120125
  7. INVEGA [Suspect]
     Route: 048
     Dates: start: 20111229, end: 20120104
  8. DIAZEPAM [Concomitant]
     Indication: SCHIZOPHRENIA, PARANOID TYPE
     Route: 048
     Dates: start: 20120109
  9. LORAZEPAM [Concomitant]
     Indication: SCHIZOPHRENIA, PARANOID TYPE
     Route: 048
     Dates: start: 20120121
  10. ABILIFY [Concomitant]
     Indication: SCHIZOPHRENIA, PARANOID TYPE
     Route: 048
     Dates: start: 20120229
  11. INVEGA [Suspect]
     Route: 048
     Dates: start: 20111224, end: 20111228
  12. ROZEREM [Concomitant]
     Indication: SCHIZOPHRENIA, PARANOID TYPE
     Route: 048
     Dates: start: 20120201

REACTIONS (9)
  - AMENORRHOEA [None]
  - HORDEOLUM [None]
  - IRON DEFICIENCY ANAEMIA [None]
  - HYPERPROLACTINAEMIA [None]
  - CONSTIPATION [None]
  - POLYDIPSIA [None]
  - CERVICOBRACHIAL SYNDROME [None]
  - UPPER RESPIRATORY TRACT INFLAMMATION [None]
  - THIRST [None]
